FAERS Safety Report 25712146 (Version 5)
Quarter: 2025Q4

REPORT INFORMATION
  Report Type: Spontaneous
  Country: US (occurrence: US)
  Receive Date: 20250821
  Receipt Date: 20251105
  Transmission Date: 20260118
  Serious: No
  Sender: PFIZER
  Company Number: US-PFIZER INC-202500165877

PATIENT
  Age: 11 Month
  Sex: Female
  Weight: 7.455 kg

DRUGS (1)
  1. GENOTROPIN [Suspect]
     Active Substance: SOMATROPIN
     Indication: Growth hormone deficiency
     Dosage: 0.2 MG, 1X/DAY

REACTIONS (2)
  - Drug dose omission by device [Unknown]
  - Device leakage [Unknown]
